FAERS Safety Report 4439342-2 (Version None)
Quarter: 2004Q3

REPORT INFORMATION
  Report Type: 
  Country: None (occurrence: None)
  Receive Date: 20040831
  Receipt Date: 20040818
  Transmission Date: 20050211
  Serious: Yes (Hospitalization)
  Sender: FDA-Public Use
  Company Number: 2004-BP-06951BP

PATIENT
  Sex: Male

DRUGS (5)
  1. SPIRIVA [Suspect]
     Indication: CHRONIC OBSTRUCTIVE AIRWAYS DISEASE
     Dosage: 18 MCG (18 MCG), INH
     Route: 055
     Dates: start: 20040731, end: 20040806
  2. COMBIVENT [Suspect]
     Indication: CHRONIC OBSTRUCTIVE AIRWAYS DISEASE
     Dosage: 8 PUF (SEE TEXT, 2 PUFFS QID PRN), IH
     Route: 055
  3. DUONEB [Suspect]
     Indication: CHRONIC OBSTRUCTIVE AIRWAYS DISEASE
     Dosage: SEE TEXT (Q 6 HOURS PRN), IH
     Route: 055
  4. VASOTEC [Concomitant]
  5. DIGOXIN [Concomitant]

REACTIONS (5)
  - CARDIAC FAILURE CONGESTIVE [None]
  - OEDEMA PERIPHERAL [None]
  - PHARYNGEAL OEDEMA [None]
  - SPEECH DISORDER [None]
  - SWOLLEN TONGUE [None]
